FAERS Safety Report 9456681 (Version 3)
Quarter: 2013Q4

REPORT INFORMATION
  Report Type: Spontaneous
  Country: ZA (occurrence: ZA)
  Receive Date: 20130813
  Receipt Date: 20131001
  Transmission Date: 20140711
  Serious: Yes (Hospitalization)
  Sender: FDA-Public Use
  Company Number: ZA-ELI_LILLY_AND_COMPANY-ZA201308001255

PATIENT
  Age: 57 Year
  Sex: Male

DRUGS (4)
  1. HUMULIN 30% REGULAR, 70% NPH [Suspect]
     Indication: DIABETES MELLITUS
     Dosage: 20 U, EACH MORNING
  2. HUMULIN 30% REGULAR, 70% NPH [Suspect]
     Dosage: 11 U, EACH EVENING
  3. LOMANOR [Concomitant]
     Indication: HYPERTENSION
     Dosage: UNK, QD
     Route: 048
     Dates: start: 20130702
  4. MIRTAZAPINE SANDOZ [Concomitant]
     Indication: DEPRESSION
     Dosage: 15 MG, EACH EVENING
     Route: 048
     Dates: start: 20130702

REACTIONS (2)
  - Blood glucose increased [Recovered/Resolved]
  - Influenza [Unknown]
